FAERS Safety Report 7904092-4 (Version None)
Quarter: 2011Q4

REPORT INFORMATION
  Report Type: 
  Country: None (occurrence: None)
  Receive Date: 20111109
  Receipt Date: 20111102
  Transmission Date: 20120403
  Serious: Yes (Hospitalization, Other)
  Sender: FDA-Public Use
  Company Number: US-MERCK-1106USA03113

PATIENT
  Age: 75 Year
  Sex: Female
  Weight: 57 kg

DRUGS (4)
  1. CALCIUM (UNSPECIFIED) [Concomitant]
     Route: 065
  2. FOSAMAX [Suspect]
     Indication: OSTEOPOROSIS
     Route: 048
     Dates: start: 20020501, end: 20070201
  3. FOSAMAX PLUS D [Suspect]
     Indication: OSTEOPOROSIS
     Route: 048
     Dates: start: 20070301, end: 20070601
  4. ALENDRONATE SODIUM [Suspect]
     Route: 048
     Dates: start: 20070501, end: 20081201

REACTIONS (25)
  - FEMUR FRACTURE [None]
  - MUSCLE INJURY [None]
  - IRON DEFICIENCY ANAEMIA [None]
  - BURSITIS [None]
  - ANAEMIA [None]
  - HYPERTENSION [None]
  - OSTEOARTHRITIS [None]
  - HELICOBACTER GASTRITIS [None]
  - ANAEMIA POSTOPERATIVE [None]
  - FRACTURED SACRUM [None]
  - BREAST DISORDER [None]
  - VARICOSE VEIN [None]
  - GASTRITIS [None]
  - MEDIASTINAL MASS [None]
  - POLYP [None]
  - HAEMORRHOIDS [None]
  - POLYP COLORECTAL [None]
  - DIVERTICULUM [None]
  - EYELID PTOSIS [None]
  - BENIGN NEOPLASM [None]
  - PUBIS FRACTURE [None]
  - FALL [None]
  - PELVIC FRACTURE [None]
  - CATARACT NUCLEAR [None]
  - BODY HEIGHT DECREASED [None]
